FAERS Safety Report 8554227-8 (Version None)
Quarter: 2012Q3

REPORT INFORMATION
  Report Type: 
  Country: None (occurrence: None)
  Receive Date: 20120731
  Receipt Date: 20120716
  Transmission Date: 20120928
  Serious: No
  Sender: FDA-Public Use
  Company Number: US-ASTRAZENECA-2011SE46068

PATIENT
  Age: 61 Year
  Sex: Male

DRUGS (11)
  1. ACCOLATE [Suspect]
     Route: 048
  2. VENTOLIN HAF [Concomitant]
  3. NEXIUM [Suspect]
     Dosage: TWO PER DAY
     Route: 048
  4. UNIPHYL [Concomitant]
  5. COMBIVENT [Concomitant]
  6. PREDNISONE [Concomitant]
     Indication: ASTHMA
  7. ACCOLATE [Suspect]
     Indication: ASTHMA
     Route: 048
  8. NEXIUM [Suspect]
     Route: 048
  9. ACCOLATE [Suspect]
     Dosage: TWO PER DAY
     Route: 048
  10. ADVAIR DISKUS 100/50 [Concomitant]
  11. NEXIUM [Suspect]
     Route: 048

REACTIONS (15)
  - PYREXIA [None]
  - DYSPNOEA [None]
  - INCREASED UPPER AIRWAY SECRETION [None]
  - LUNG DISORDER [None]
  - GASTROOESOPHAGEAL REFLUX DISEASE [None]
  - CHEST DISCOMFORT [None]
  - INSOMNIA [None]
  - DYSLIPIDAEMIA [None]
  - INTENTIONAL DRUG MISUSE [None]
  - MULTIPLE ALLERGIES [None]
  - ASTHMA [None]
  - NIGHT SWEATS [None]
  - CHRONIC OBSTRUCTIVE PULMONARY DISEASE [None]
  - PRODUCTIVE COUGH [None]
  - PULMONARY CONGESTION [None]
